FAERS Safety Report 11715847 (Version 2)
Quarter: 2015Q4

REPORT INFORMATION
  Report Type: Spontaneous
  Country: US (occurrence: US)
  Receive Date: 20151104
  Receipt Date: 20151110
  Transmission Date: 20160304
  Serious: No
  Sender: FDA-Public Use
  Company Number: US-ELI_LILLY_AND_COMPANY-US201105006988

PATIENT
  Age: 82 Year
  Sex: Female

DRUGS (6)
  1. FORTEO [Suspect]
     Active Substance: TERIPARATIDE
     Dosage: 20 UG, QD
     Route: 058
     Dates: end: 201107
  2. IBUPROFEN. [Concomitant]
     Active Substance: IBUPROFEN
  3. FORTEO [Suspect]
     Active Substance: TERIPARATIDE
     Indication: OSTEOPOROSIS
     Dosage: 20 UG, QD
     Route: 058
     Dates: start: 20110523
  4. FORTEO [Suspect]
     Active Substance: TERIPARATIDE
     Dosage: 20 UG, QD
     Route: 058
  5. FORTEO [Suspect]
     Active Substance: TERIPARATIDE
     Dosage: 20 UG, QD
     Route: 058
  6. FORTEO [Suspect]
     Active Substance: TERIPARATIDE
     Dosage: 20 UG, QD
     Route: 058

REACTIONS (22)
  - Toothache [Not Recovered/Not Resolved]
  - Injection site discomfort [Recovered/Resolved]
  - Mass [Unknown]
  - Vein disorder [Unknown]
  - Malaise [Not Recovered/Not Resolved]
  - Injection site haemorrhage [Not Recovered/Not Resolved]
  - Pain in extremity [Unknown]
  - Blood disorder [Unknown]
  - Limb discomfort [Unknown]
  - Fall [Recovered/Resolved]
  - Pain in extremity [Recovering/Resolving]
  - Back injury [Unknown]
  - Pain [Unknown]
  - Dizziness [Unknown]
  - Dental caries [Unknown]
  - Back pain [Unknown]
  - Pain [Recovering/Resolving]
  - Upper limb fracture [Not Recovered/Not Resolved]
  - Joint injury [Unknown]
  - Injection site pain [Recovered/Resolved]
  - Intentional product misuse [Not Recovered/Not Resolved]
  - Erythema [Unknown]

NARRATIVE: CASE EVENT DATE: 2011
